FAERS Safety Report 9787725 (Version 2)
Quarter: 2014Q1

REPORT INFORMATION
  Report Type: Spontaneous
  Country: JP (occurrence: JP)
  Receive Date: 20131230
  Receipt Date: 20140120
  Transmission Date: 20141002
  Serious: Yes (Other)
  Sender: FDA-Public Use
  Company Number: JP-JNJFOC-20131215306

PATIENT
  Age: 88 Year
  Sex: Female
  Weight: 39 kg

DRUGS (11)
  1. XARELTO [Suspect]
     Indication: CEREBROVASCULAR ACCIDENT PROPHYLAXIS
     Dosage: IN THE MORNING
     Route: 048
     Dates: start: 20131203
  2. XARELTO [Suspect]
     Indication: ATRIAL FIBRILLATION
     Dosage: IN THE MORNING
     Route: 048
     Dates: start: 20131203
  3. PLAVIX [Concomitant]
     Indication: CARDIAC DISORDER
     Route: 048
  4. BAYASPIRIN [Concomitant]
     Indication: CARDIAC DISORDER
     Route: 048
     Dates: start: 20131203
  5. CALFINA [Concomitant]
     Indication: PRODUCT USED FOR UNKNOWN INDICATION
     Route: 048
     Dates: start: 20131203
  6. SELARA (EPLERENONE) [Concomitant]
     Indication: PRODUCT USED FOR UNKNOWN INDICATION
     Dosage: IN THE MORNING
     Route: 048
     Dates: start: 20131203
  7. LASIX [Concomitant]
     Indication: PRODUCT USED FOR UNKNOWN INDICATION
     Route: 048
     Dates: start: 20131203
  8. RABEPRAZOLE SODIUM [Concomitant]
     Indication: PRODUCT USED FOR UNKNOWN INDICATION
     Route: 048
     Dates: start: 20131203
  9. LANIRAPID [Concomitant]
     Indication: CEREBROVASCULAR ACCIDENT PROPHYLAXIS
     Route: 048
     Dates: start: 20131203
  10. LANIRAPID [Concomitant]
     Indication: ATRIAL FIBRILLATION
     Route: 048
     Dates: start: 20131203
  11. OMEPRAL [Concomitant]
     Indication: GASTRIC DISORDER
     Route: 048

REACTIONS (2)
  - Pulmonary congestion [Recovering/Resolving]
  - Brain natriuretic peptide increased [Recovering/Resolving]
